FAERS Safety Report 20116434 (Version 2)
Quarter: 2021Q4

REPORT INFORMATION
  Report Type: Spontaneous
  Country: US (occurrence: None)
  Receive Date: 20211126
  Receipt Date: 20211215
  Transmission Date: 20220303
  Serious: Yes (Death, Hospitalization)
  Sender: FDA-Public Use
  Company Number: US-ROCHE-2963947

PATIENT
  Age: 66 Year
  Sex: Female

DRUGS (5)
  1. OCREVUS [Suspect]
     Active Substance: OCRELIZUMAB
     Indication: Multiple sclerosis
     Dosage: NEXT DOSE ON 30/JUL/2021
     Route: 042
     Dates: start: 20210715
  2. AMANTADINE [Concomitant]
     Active Substance: AMANTADINE
  3. DULOXETINE [Concomitant]
     Active Substance: DULOXETINE
  4. BACLOFEN [Concomitant]
     Active Substance: BACLOFEN
  5. DIAZEPAM [Concomitant]
     Active Substance: DIAZEPAM

REACTIONS (1)
  - COVID-19 pneumonia [Fatal]

NARRATIVE: CASE EVENT DATE: 20211101
